FAERS Safety Report 9319850 (Version 1)
Quarter: 2013Q1

REPORT INFORMATION
  Report Type: Spontaneous
  Country: SE (occurrence: None)
  Receive Date: 20121114
  Receipt Date: 20121114
  Transmission Date: 20140127
  Serious: Yes (Death)
  Sender: FDA-Public Use
  Company Number: 219016

PATIENT
  Age: 78 Year
  Sex: Female

DRUGS (15)
  1. INNOHEP (TINZAPARIN SODIUM) [Suspect]
     Indication: PRODUCT USED FOR UNKNOWN INDICATION
  2. ANGIOX [Suspect]
     Indication: PRODUCT USED FOR UNKNOWN INDICATION
     Route: 042
     Dates: start: 20120718, end: 20120718
  3. CLOPIDOGREL (CLOPIDOGREL) [Suspect]
     Indication: PRODUCT USED FOR UNKNOWN INDICATION
  4. WARAN [Suspect]
     Indication: PRODUCT USED FOR UNKNOWN INDICATION
  5. TROMBYL [Suspect]
     Indication: PRODUCT USED FOR UNKNOWN INDICATION
  6. BRILIQUE [Suspect]
  7. KAJOS [Concomitant]
  8. DIGOXIN (DIGOXIN) [Concomitant]
  9. FURIX (FUROSEMIDE) [Concomitant]
  10. SIMVASTATIN [Concomitant]
  11. ENALAPRIL [Concomitant]
  12. CEFOTAXIM (CEFOTAXIME SODIUM) [Concomitant]
  13. SELOKEN (METOPROLOL SUCCINATE) [Concomitant]
  14. ALVEDON (PARACETAMOL) [Concomitant]
  15. GLYTRIN (GLYCERYL TRINITRATE) [Concomitant]

REACTIONS (10)
  - Cardiac failure [None]
  - Respiratory failure [None]
  - Endocarditis [None]
  - Pulmonary embolism [None]
  - Dialysis [None]
  - Pulmonary hypertension [None]
  - Tricuspid valve incompetence [None]
  - Pulmonary alveolar haemorrhage [None]
  - Acute respiratory distress syndrome [None]
  - Acute respiratory distress syndrome [None]
